FAERS Safety Report 17969568 (Version 3)
Quarter: 2021Q1

REPORT INFORMATION
  Report Type: Report from Study
  Country: BE (occurrence: BE)
  Receive Date: 20200701
  Receipt Date: 20210318
  Transmission Date: 20210419
  Serious: Yes (Hospitalization)
  Sender: FDA-Public Use
  Company Number: BE-PFIZER INC-2020251062

PATIENT
  Age: 73 Year
  Sex: Male
  Weight: 78 kg

DRUGS (5)
  1. CISPLATIN. [Suspect]
     Active Substance: CISPLATIN
     Indication: BLADDER TRANSITIONAL CELL CARCINOMA
     Dosage: 733.63 MG, CYCLIC(ONCE EVERY TWO WEEKS)
     Route: 042
     Dates: start: 20200507
  2. AVELUMAB [Suspect]
     Active Substance: AVELUMAB
     Indication: BLADDER TRANSITIONAL CELL CARCINOMA
     Dosage: 810 MG, CYCLIC(ONCE EVERY TWO WEEKS)
     Route: 042
     Dates: start: 20200507
  3. DOXORUBICIN HCL [Suspect]
     Active Substance: DOXORUBICIN HYDROCHLORIDE
     Indication: BLADDER TRANSITIONAL CELL CARCINOMA
     Dosage: 57.27 MG, CYCLIC(ONCE EVERY TWO WEEKS)
     Route: 042
     Dates: start: 20200507
  4. VINBLASTINE [Suspect]
     Active Substance: VINBLASTINE
     Indication: BLADDER TRANSITIONAL CELL CARCINOMA
     Dosage: 5.73 MG, CYCLIC (ONCE EVERY TWO WEEKS)
     Route: 042
     Dates: start: 20200507
  5. METHOTREXATE SODIUM. [Suspect]
     Active Substance: METHOTREXATE SODIUM
     Indication: BLADDER TRANSITIONAL CELL CARCINOMA
     Dosage: 57.25 MG, CYCLIC(ONCE EVERY TWO WEEKS)
     Route: 042
     Dates: start: 20200506

REACTIONS (1)
  - Acute kidney injury [Recovered/Resolved]

NARRATIVE: CASE EVENT DATE: 20200518
